FAERS Safety Report 23229111 (Version 1)
Quarter: 2023Q4

REPORT INFORMATION
  Report Type: Spontaneous
  Country: US (occurrence: US)
  Receive Date: 20231127
  Receipt Date: 20231127
  Transmission Date: 20240110
  Serious: Yes (Death)
  Sender: FDA-Public Use
  Company Number: US-drreddys-LIT/USA/23/0186911

PATIENT
  Age: 5 Year
  Sex: Male

DRUGS (4)
  1. DEXAMETHASONE [Suspect]
     Active Substance: DEXAMETHASONE
     Indication: Burkitt^s lymphoma stage III
     Dosage: UNKNOWN
  2. OXALIPLATIN [Suspect]
     Active Substance: OXALIPLATIN
     Indication: Burkitt^s lymphoma stage III
  3. OFATUMUMAB [Suspect]
     Active Substance: OFATUMUMAB
     Indication: Burkitt^s lymphoma stage III
     Dosage: 3 CYCLES OF OFATUMUMAB
  4. ETOPOSIDE [Suspect]
     Active Substance: ETOPOSIDE
     Indication: Burkitt^s lymphoma stage III

REACTIONS (1)
  - Drug ineffective [Fatal]
